FAERS Safety Report 5599475-4 (Version None)
Quarter: 2008Q1

REPORT INFORMATION
  Report Type: 
  Country: None (occurrence: None)
  Receive Date: 20080117
  Receipt Date: 20080104
  Transmission Date: 20080703
  Serious: Yes (Hospitalization)
  Sender: FDA-Public Use
  Company Number: 2008AL000149

PATIENT
  Age: 65 Year
  Sex: Male

DRUGS (2)
  1. AMLODIPINE BESYLATE [Suspect]
     Indication: HYPERTENSION
     Dosage: 10 MG; QD; PO
     Route: 048
     Dates: end: 20071122
  2. IRBESARTAN [Concomitant]

REACTIONS (3)
  - DEMYELINATING POLYNEUROPATHY [None]
  - MESENTERIC PANNICULITIS [None]
  - NEUROPATHY PERIPHERAL [None]
